FAERS Safety Report 9553478 (Version 1)
Quarter: 2013Q3

REPORT INFORMATION
  Report Type: Spontaneous
  Country: US (occurrence: None)
  Receive Date: 20130924
  Receipt Date: 20130924
  Transmission Date: 20140515
  Serious: Yes (Disabling)
  Sender: FDA-Public Use
  Company Number: None

PATIENT
  Age: 36 Year
  Sex: Female
  Weight: 68.95 kg

DRUGS (1)
  1. CIPROFLOXACIN HCL [Suspect]
     Indication: URINARY TRACT INFECTION
     Dosage: ONE TABLET TWICE DAILY TAKEN BY MOUTH
     Route: 048
     Dates: start: 20130729, end: 20130731

REACTIONS (15)
  - Myalgia [None]
  - Blepharospasm [None]
  - Muscle twitching [None]
  - Anxiety [None]
  - Palpitations [None]
  - Insomnia [None]
  - Chest discomfort [None]
  - Neuropathy peripheral [None]
  - Tendonitis [None]
  - Back pain [None]
  - Emotional disorder [None]
  - Toxicity to various agents [None]
  - Economic problem [None]
  - Nerve injury [None]
  - Fear of disease [None]
